FAERS Safety Report 11687911 (Version 1)
Quarter: 2015Q4

REPORT INFORMATION
  Report Type: Spontaneous
  Country: US (occurrence: US)
  Receive Date: 20151030
  Receipt Date: 20151030
  Transmission Date: 20160304
  Serious: Yes (Other)
  Sender: FDA-Public Use
  Company Number: US-BAYER-2015-455297

PATIENT
  Sex: Male

DRUGS (2)
  1. DR. SCHOLLS CLEAR AWAY WART REMOVER PLANTAR [Suspect]
     Active Substance: SALICYLIC ACID
     Indication: SKIN PAPILLOMA
  2. DR. SCHOLLS CLEAR AWAY WART REMOVER [Suspect]
     Active Substance: SALICYLIC ACID
     Indication: SKIN PAPILLOMA

REACTIONS (8)
  - Skin burning sensation [None]
  - Application site haemorrhage [None]
  - Application site pain [None]
  - Product use issue [None]
  - Skin haemorrhage [None]
  - Drug ineffective [None]
  - Product adhesion issue [None]
  - Incorrect dose administered [None]
